FAERS Safety Report 14444669 (Version 2)
Quarter: 2018Q1

REPORT INFORMATION
  Report Type: Spontaneous
  Country: SE (occurrence: SE)
  Receive Date: 20180126
  Receipt Date: 20180215
  Transmission Date: 20180509
  Serious: Yes (Death)
  Sender: FDA-Public Use
  Company Number: SE-KRKA, D.D., NOVO MESTO-2040840

PATIENT
  Age: 57 Year
  Sex: Male

DRUGS (5)
  1. FLUTICASONE PROPIONATE AND SALMETEROL DISKUS [Concomitant]
     Active Substance: FLUTICASONE PROPIONATE\SALMETEROL XINAFOATE
  2. SPIRONOLACTONE. [Suspect]
     Active Substance: SPIRONOLACTONE
     Route: 048
  3. ENALAPRIL GENERIC (ENALAPRIL) UNKNOWN [Suspect]
     Active Substance: ENALAPRIL
     Route: 048
     Dates: start: 20080130, end: 201709
  4. VERAPAMIL [Suspect]
     Active Substance: VERAPAMIL HYDROCHLORIDE
     Route: 048
     Dates: start: 20090622, end: 201709
  5. DIGOXIN. [Suspect]
     Active Substance: DIGOXIN
     Route: 048
     Dates: start: 20111202, end: 201709

REACTIONS (4)
  - Loss of consciousness [Fatal]
  - Cardiac arrest [Fatal]
  - Seizure [Fatal]
  - Toxicity to various agents [Fatal]
